FAERS Safety Report 13173130 (Version 2)
Quarter: 2018Q1

REPORT INFORMATION
  Report Type: Spontaneous
  Country: US (occurrence: US)
  Receive Date: 20170201
  Receipt Date: 20180126
  Transmission Date: 20180508
  Serious: No
  Sender: FDA-Public Use
  Company Number: US-ABBVIE-16P-163-1610894-00

PATIENT
  Sex: Female

DRUGS (2)
  1. MUPIROCIN. [Suspect]
     Active Substance: MUPIROCIN
     Indication: PRODUCT USED FOR UNKNOWN INDICATION
     Route: 061
  2. HUMIRA [Suspect]
     Active Substance: ADALIMUMAB
     Indication: HIDRADENITIS
     Route: 058

REACTIONS (21)
  - Incorrect route of drug administration [Unknown]
  - Vein disorder [Unknown]
  - Post procedural complication [Unknown]
  - Stress [Unknown]
  - Pain in extremity [Unknown]
  - Drug ineffective [Unknown]
  - Rash [Unknown]
  - Immunosuppression [Unknown]
  - Breast mass [Unknown]
  - Hypoaesthesia [Unknown]
  - Hidradenitis [Unknown]
  - Mass [Unknown]
  - Weight decreased [Unknown]
  - Injection site pain [Unknown]
  - Hidradenitis [Recovering/Resolving]
  - Axillary mass [Unknown]
  - Musculoskeletal disorder [Unknown]
  - Feeling cold [Unknown]
  - Immunodeficiency [Unknown]
  - Paraesthesia [Unknown]
  - Nasopharyngitis [Unknown]

NARRATIVE: CASE EVENT DATE: 20170130
